FAERS Safety Report 5841789-4 (Version None)
Quarter: 2008Q3

REPORT INFORMATION
  Report Type: 
  Country: None (occurrence: None)
  Receive Date: 20080812
  Receipt Date: 20080731
  Transmission Date: 20090109
  Serious: Yes (Congenital Anomaly)
  Sender: FDA-Public Use
  Company Number: A0680199A

PATIENT
  Sex: Female

DRUGS (4)
  1. PAXIL CR [Suspect]
     Indication: DEPRESSION
     Dates: start: 19980101, end: 20020101
  2. VITAMIN TAB [Concomitant]
     Dates: start: 20010101, end: 20020101
  3. CELEXA [Concomitant]
     Indication: ANXIETY
     Dates: start: 20020101
  4. ZITHROMAX [Concomitant]

REACTIONS (6)
  - AORTIC VALVE STENOSIS [None]
  - ATRIAL SEPTAL DEFECT [None]
  - CARDIAC DISORDER [None]
  - DRUG EXPOSURE DURING PREGNANCY [None]
  - PERSISTENT FOETAL CIRCULATION [None]
  - VENTRICULAR SEPTAL DEFECT [None]
